FAERS Safety Report 6386656-5 (Version None)
Quarter: 2009Q3

REPORT INFORMATION
  Report Type: 
  Country: None (occurrence: None)
  Receive Date: 20090930
  Receipt Date: 20090930
  Transmission Date: 20100115
  Serious: Yes (Other)
  Sender: FDA-Public Use
  Company Number: None

PATIENT
  Age: 65 Year
  Sex: Male
  Weight: 108.8633 kg

DRUGS (2)
  1. TRIPTORELIN PAMOATE [Suspect]
     Indication: PROSTATE CANCER
     Dosage: 11.25MG EVERY 3 MONTHS IM
     Route: 030
     Dates: start: 20090311, end: 20090311
  2. TRIPTORELIN PAMOATE [Suspect]
     Indication: PROSTATE CANCER
     Dosage: 11.25MG EVERY 3 MONTHS IM
     Route: 030
     Dates: start: 20090611, end: 20090611

REACTIONS (4)
  - BLOOD TESTOSTERONE INCREASED [None]
  - MEDICATION ERROR [None]
  - PRODUCT MEASURED POTENCY ISSUE [None]
  - PROSTATIC SPECIFIC ANTIGEN INCREASED [None]
